FAERS Safety Report 21351986 (Version 1)
Quarter: 2022Q3

REPORT INFORMATION
  Report Type: Spontaneous
  Country: US (occurrence: None)
  Receive Date: 20220919
  Receipt Date: 20220919
  Transmission Date: 20221026
  Serious: No
  Sender: FDA-Public Use
  Company Number: None

PATIENT
  Age: 75 Year
  Sex: Female
  Weight: 106.59 kg

DRUGS (7)
  1. LETROZOLE [Suspect]
     Active Substance: LETROZOLE
     Indication: Endometrial cancer
     Dosage: FREQUENCY : DAILY;?
     Route: 048
     Dates: start: 202111
  2. FENOFIBRATE [Concomitant]
  3. LENVIMA [Concomitant]
  4. LEVOTHYROXINE [Concomitant]
  5. MAGOX [Concomitant]
  6. OMEPRAZOLE [Concomitant]
  7. XARELTO [Concomitant]

REACTIONS (1)
  - Disease progression [None]
